FAERS Safety Report 11850236 (Version 1)
Quarter: 2015Q4

REPORT INFORMATION
  Report Type: Report from Study
  Country: ES (occurrence: ES)
  Receive Date: 20151218
  Receipt Date: 20151218
  Transmission Date: 20160305
  Serious: Yes (Other)
  Sender: FDA-Public Use
  Company Number: ES-BAXTER-2015BAX068319

PATIENT

DRUGS (1)
  1. GENOXAL [Suspect]
     Active Substance: CYCLOPHOSPHAMIDE
     Indication: GLOMERULONEPHRITIS
     Route: 065

REACTIONS (2)
  - No therapeutic response [Unknown]
  - Chronic kidney disease [Unknown]
